FAERS Safety Report 9487733 (Version 2)
Quarter: 2013Q3

REPORT INFORMATION
  Report Type: Spontaneous
  Country: US (occurrence: US)
  Receive Date: 20130725
  Receipt Date: 20130725
  Transmission Date: 20140515
  Serious: Yes (Other)
  Sender: FDA-Public Use
  Company Number: US-GLAXOSMITHKLINE-A0887173A

PATIENT
  Age: 59 Year
  Sex: Male

DRUGS (2)
  1. AVANDIA [Suspect]
     Indication: DIABETES MELLITUS
     Dosage: 8MG PER DAY
     Dates: start: 200109, end: 20041203
  2. AVANDAMET [Suspect]
     Indication: DIABETES MELLITUS
     Dosage: 1TAB PER DAY
     Dates: start: 20041203, end: 200506

REACTIONS (1)
  - Cardiac failure congestive [Not Recovered/Not Resolved]
